FAERS Safety Report 8408184-5 (Version None)
Quarter: 2012Q2

REPORT INFORMATION
  Report Type: 
  Country: None (occurrence: None)
  Receive Date: 20120604
  Receipt Date: 20120515
  Transmission Date: 20120825
  Serious: No
  Sender: FDA-Public Use
  Company Number: US-ASTRAZENECA-2012SE10528

PATIENT
  Age: 46 Year
  Sex: Female
  Weight: 67.3 kg

DRUGS (3)
  1. CRESTOR [Suspect]
     Indication: HYPERLIPIDAEMIA
     Route: 048
     Dates: start: 20120106, end: 20120109
  2. PRAVACHOL [Concomitant]
  3. ZOCOR [Concomitant]

REACTIONS (8)
  - PAIN IN EXTREMITY [None]
  - SENSATION OF HEAVINESS [None]
  - OCULAR HYPERAEMIA [None]
  - HYPOAESTHESIA [None]
  - PARAESTHESIA [None]
  - HEADACHE [None]
  - MYALGIA [None]
  - PAIN [None]
